FAERS Safety Report 5311887-2 (Version None)
Quarter: 2007Q2

REPORT INFORMATION
  Report Type: 
  Country: None (occurrence: None)
  Receive Date: 20070426
  Receipt Date: 20070426
  Transmission Date: 20071010
  Serious: Yes (Other)
  Sender: FDA-Public Use
  Company Number: None

PATIENT
  Age: 38 Year
  Sex: Female
  Weight: 54.4316 kg

DRUGS (4)
  1. PENICILLIN G [Suspect]
     Indication: ANIMAL BITE
     Dosage: I THINK 2 MILLION UNITS Q4 IV DRIP
     Route: 041
     Dates: start: 20070417, end: 20070418
  2. OXYCODONE HCL [Concomitant]
  3. ZOFRAN [Concomitant]
  4. GENT [Concomitant]

REACTIONS (4)
  - DECREASED ACTIVITY [None]
  - INFUSION SITE BRUISING [None]
  - INJECTION SITE PHLEBITIS [None]
  - PAIN [None]
